FAERS Safety Report 24969433 (Version 1)
Quarter: 2025Q1

REPORT INFORMATION
  Report Type: Spontaneous
  Country: US (occurrence: None)
  Receive Date: 20250213
  Receipt Date: 20250213
  Transmission Date: 20250408
  Serious: Yes (Hospitalization)
  Sender: FDA-CTU
  Company Number: None

PATIENT
  Sex: Female

DRUGS (1)
  1. CAPECITABINE [Suspect]
     Active Substance: CAPECITABINE
     Indication: Cholangiocarcinoma
     Dosage: FREQUENCY : TWICE A DAY;?
     Route: 048
     Dates: start: 202409

REACTIONS (7)
  - Nausea [None]
  - Dizziness [None]
  - Abdominal distension [None]
  - Gastrointestinal disorder [None]
  - Dry skin [None]
  - Therapy interrupted [None]
  - Illness [None]
